FAERS Safety Report 11112598 (Version 1)
Quarter: 2015Q2

REPORT INFORMATION
  Report Type: Spontaneous
  Country: US (occurrence: None)
  Receive Date: 20150513
  Receipt Date: 20150513
  Transmission Date: 20150821
  Serious: Yes (Life-Threatening, Hospitalization)
  Sender: FDA-Public Use
  Company Number: None

PATIENT
  Age: 27 Year
  Sex: Male
  Weight: 80.9 kg

DRUGS (4)
  1. CLONAZEPAM. [Concomitant]
     Active Substance: CLONAZEPAM
  2. SERTRALINE [Concomitant]
     Active Substance: SERTRALINE HYDROCHLORIDE
  3. LAMICTAL [Suspect]
     Active Substance: LAMOTRIGINE
     Indication: BORDERLINE PERSONALITY DISORDER
     Route: 048
     Dates: start: 20150327, end: 20150505
  4. LAMICTAL [Suspect]
     Active Substance: LAMOTRIGINE
     Indication: BIPOLAR DISORDER
     Route: 048
     Dates: start: 20150327, end: 20150505

REACTIONS (13)
  - Lip pain [None]
  - Dysphagia [None]
  - Vision blurred [None]
  - Corneal defect [None]
  - Lip swelling [None]
  - Pharyngeal oedema [None]
  - Oropharyngeal pain [None]
  - Rash [None]
  - Skin ulcer [None]
  - Diplopia [None]
  - Blister [None]
  - Stomatitis [None]
  - Dyspnoea [None]

NARRATIVE: CASE EVENT DATE: 20150502
